FAERS Safety Report 12501347 (Version 1)
Quarter: 2016Q2

REPORT INFORMATION
  Report Type: Report from Study
  Country: IN (occurrence: IN)
  Receive Date: 20160627
  Receipt Date: 20160627
  Transmission Date: 20160815
  Serious: Yes (Life-Threatening, Hospitalization, Disabling, Other)
  Sender: FDA-Public Use
  Company Number: IN-009507513-1606IND011615

PATIENT
  Age: 62 Year
  Sex: Male

DRUGS (1)
  1. SITAGLIPTIN PHOSPHATE (+) METFORMIN HYDROCHLORIDE [Suspect]
     Active Substance: METFORMIN HYDROCHLORIDE\SITAGLIPTIN PHOSPHATE
     Indication: DIABETES MELLITUS
     Dosage: 1 TABLET / DAY
     Route: 048
     Dates: end: 2016

REACTIONS (2)
  - Inappropriate schedule of drug administration [Unknown]
  - Gangrene [Unknown]

NARRATIVE: CASE EVENT DATE: 20160524
